FAERS Safety Report 7982355-4 (Version None)
Quarter: 2011Q4

REPORT INFORMATION
  Report Type: 
  Country: None (occurrence: None)
  Receive Date: 20111215
  Receipt Date: 20111206
  Transmission Date: 20120403
  Serious: Yes (Other)
  Sender: FDA-Public Use
  Company Number: PHHY2011US92636

PATIENT
  Age: 60 Year
  Sex: Male

DRUGS (6)
  1. MELPHALAN HYDROCHLORIDE [Concomitant]
  2. THALIDOMIDE [Concomitant]
  3. ZOLEDRONIC ACID [Suspect]
     Indication: MULTIPLE MYELOMA
  4. PAMIDRONATE DISODIUM [Suspect]
     Indication: MULTIPLE MYELOMA
  5. BORTEZOMIB [Concomitant]
  6. GLUCOCORTICOSTEROIDS [Concomitant]
     Dosage: UNK

REACTIONS (7)
  - FRACTURE NONUNION [None]
  - PAIN [None]
  - HYPOAESTHESIA [None]
  - PERIPHERAL COLDNESS [None]
  - FOOT FRACTURE [None]
  - TENDERNESS [None]
  - PARAESTHESIA [None]
